FAERS Safety Report 4655428-1 (Version None)
Quarter: 2005Q2

REPORT INFORMATION
  Report Type: 
  Country: None (occurrence: None)
  Receive Date: 20050505
  Receipt Date: 20050426
  Transmission Date: 20051028
  Serious: Yes (Other)
  Sender: FDA-Public Use
  Company Number: 05-000261

PATIENT
  Age: 66 Year
  Sex: Female

DRUGS (19)
  1. ESTRACE [Suspect]
     Indication: HORMONE REPLACEMENT THERAPY
     Dosage: 0.01 %
  2. ESTRACE [Suspect]
     Indication: HORMONE REPLACEMENT THERAPY
     Dosage: 1 MG, ORAL
     Route: 048
     Dates: start: 20000311, end: 20040301
  3. XALATAN [Concomitant]
  4. AMOXICILLIN [Concomitant]
  5. DYNEX [Concomitant]
  6. ZITHROMAX [Concomitant]
  7. LEVAQUIN [Concomitant]
  8. MURO 128 (SODIUM CHLORIDE) [Concomitant]
  9. PRED-FORTE (PREDNISOLONE ACETATE) [Concomitant]
  10. OCUFLOX [Concomitant]
  11. LORTAB [Concomitant]
  12. LOTEMAX [Concomitant]
  13. ACETAZOLAMIDE [Concomitant]
  14. VIGAMOX [Concomitant]
  15. OXYCODONE AND ASPIRIN (OXYCODONE TEREPHTHALATE, OXYCODONE HYDROCHLORID [Concomitant]
  16. METHAZOLAMIDE (METHAZOLAMIDE) [Concomitant]
  17. VISICOL [Concomitant]
  18. LOTRONEX [Concomitant]
  19. DIPHENOXYLATE W/ATROPINE SULFATE [Concomitant]

REACTIONS (2)
  - DEPRESSION [None]
  - OVARIAN CANCER [None]
